FAERS Safety Report 15200846 (Version 1)
Quarter: 2018Q3

REPORT INFORMATION
  Report Type: Spontaneous
  Country: US (occurrence: US)
  Receive Date: 20180726
  Receipt Date: 20180726
  Transmission Date: 20181010
  Serious: Yes (Hospitalization, Other)
  Sender: FDA-Public Use
  Company Number: US-SA-2018SA170393

PATIENT
  Sex: Male

DRUGS (2)
  1. LANTUS [Suspect]
     Active Substance: INSULIN GLARGINE
     Indication: TYPE 2 DIABETES MELLITUS
     Dosage: 40 UNITS IN THE AM AND 20 UNITS IN THE PM
  2. NOVOLOG [Concomitant]
     Active Substance: INSULIN ASPART
     Indication: PRODUCT USED FOR UNKNOWN INDICATION

REACTIONS (9)
  - Injection site extravasation [Unknown]
  - Underdose [Unknown]
  - Myocardial infarction [Unknown]
  - Product quality issue [Unknown]
  - Hospitalisation [Unknown]
  - Weight decreased [Unknown]
  - Product use issue [Unknown]
  - Ill-defined disorder [Unknown]
  - Memory impairment [Unknown]
